FAERS Safety Report 8328170 (Version 9)
Quarter: 2015Q1

REPORT INFORMATION
  Report Type: Report from Study
  Country: CA (occurrence: CA)
  Receive Date: 20120109
  Receipt Date: 20150311
  Transmission Date: 20150721
  Serious: Yes (Hospitalization)
  Sender: FDA-Public Use
  Company Number: PHHY2011CA114769

PATIENT
  Sex: Male

DRUGS (3)
  1. SANDOSTATINE LAR [Suspect]
     Active Substance: OCTREOTIDE ACETATE
     Indication: PANCREATIC NEUROENDOCRINE TUMOUR
     Dosage: 90 MG, QMO
     Route: 030
     Dates: start: 20110513
  2. AFINITOR [Suspect]
     Active Substance: EVEROLIMUS
     Indication: PANCREATIC NEUROENDOCRINE TUMOUR
     Dosage: 10 MG, QD
     Route: 048
     Dates: start: 20110513
  3. AFINITOR [Suspect]
     Active Substance: EVEROLIMUS
     Dosage: UNK
     Route: 048
     Dates: start: 20130918

REACTIONS (13)
  - Malaise [Unknown]
  - Red blood cell count decreased [Unknown]
  - Rectal haemorrhage [Unknown]
  - White blood cell count decreased [Unknown]
  - Blood glucose decreased [Unknown]
  - Prostatitis [Unknown]
  - Rash [Recovered/Resolved]
  - Dry skin [Unknown]
  - Tooth infection [Unknown]
  - Fall [Unknown]
  - Rash papular [Unknown]
  - Malignant neoplasm progression [Unknown]
  - Blood pressure increased [Unknown]
